FAERS Safety Report 23591099 (Version 1)
Quarter: 2024Q1

REPORT INFORMATION
  Report Type: Spontaneous
  Country: US (occurrence: None)
  Receive Date: 20240301
  Receipt Date: 20240301
  Transmission Date: 20240409
  Serious: No
  Sender: FDA-Public Use
  Company Number: None

PATIENT
  Age: 81 Year
  Sex: Female

DRUGS (1)
  1. OPSUMIT [Suspect]
     Active Substance: MACITENTAN
     Indication: Pulmonary hypertension
     Dosage: FREQUENCY : DAILY;?
     Route: 048
     Dates: start: 20170519

REACTIONS (7)
  - Cough [None]
  - Dyspnoea exertional [None]
  - Nasopharyngitis [None]
  - Rhinorrhoea [None]
  - Productive cough [None]
  - Pneumonia [None]
  - Pulmonary oedema [None]

NARRATIVE: CASE EVENT DATE: 20240213
